FAERS Safety Report 6983324-3 (Version None)
Quarter: 2010Q3

REPORT INFORMATION
  Report Type: 
  Country: None (occurrence: None)
  Receive Date: 20100914
  Receipt Date: 20100730
  Transmission Date: 20110219
  Serious: Yes (Other)
  Sender: FDA-Public Use
  Company Number: US-PFIZER INC-2010097287

PATIENT
  Sex: Female
  Weight: 45.351 kg

DRUGS (6)
  1. LYRICA [Suspect]
     Indication: NERVE ROOT COMPRESSION
     Dates: start: 20090601, end: 20100301
  2. LYRICA [Suspect]
     Indication: MUSCLE SPASMS
  3. LISINOPRIL [Concomitant]
  4. CALCIUM WITH VITAMIN D [Concomitant]
  5. VITAMIN D [Concomitant]
  6. MULTI-VITAMINS [Concomitant]

REACTIONS (5)
  - LIMB DISCOMFORT [None]
  - MUSCLE SPASMS [None]
  - MYALGIA [None]
  - NECK PAIN [None]
  - WRONG TECHNIQUE IN DRUG USAGE PROCESS [None]
